FAERS Safety Report 6954686-8 (Version None)
Quarter: 2010Q3

REPORT INFORMATION
  Report Type: 
  Country: None (occurrence: None)
  Receive Date: 20100829
  Receipt Date: 20100820
  Transmission Date: 20110219
  Serious: Yes (Hospitalization)
  Sender: FDA-Public Use
  Company Number: US-US-EMD SERONO, INC.-232142J10USA

PATIENT
  Sex: Female

DRUGS (12)
  1. REBIF [Suspect]
     Indication: MULTIPLE SCLEROSIS
     Route: 058
     Dates: start: 20091208
  2. PROCHLORPERAZINE [Concomitant]
     Route: 065
  3. PREDNISONE [Concomitant]
     Route: 065
  4. TRAZODONE HCL [Concomitant]
     Indication: INSOMNIA
     Route: 065
  5. BACLOFEN [Concomitant]
     Route: 065
  6. GABAPENTIN [Concomitant]
     Route: 065
  7. REGLAN [Concomitant]
     Indication: DYSPEPSIA
     Route: 065
     Dates: start: 20100201
  8. NEXIUM [Concomitant]
     Indication: DYSPEPSIA
     Route: 065
  9. PRAMIPEXOLE [Concomitant]
     Route: 065
  10. OTHER MEDICATIONS [Concomitant]
     Route: 065
  11. LEVOTHYROXINE [Concomitant]
     Route: 065
  12. ADVIL LIQUI-GELS [Concomitant]
     Indication: PREMEDICATION
     Route: 065

REACTIONS (3)
  - BLOOD POTASSIUM DECREASED [None]
  - MULTIPLE SCLEROSIS RELAPSE [None]
  - URINARY TRACT INFECTION [None]
